FAERS Safety Report 22197979 (Version 1)
Quarter: 2023Q2

REPORT INFORMATION
  Report Type: Spontaneous
  Country: US (occurrence: US)
  Receive Date: 20230411
  Receipt Date: 20230411
  Transmission Date: 20230722
  Serious: No
  Sender: FDA-Public Use
  Company Number: US-BAYER-2023A046745

PATIENT
  Age: 64 Year
  Sex: Male

DRUGS (2)
  1. ALEVE [Suspect]
     Active Substance: NAPROXEN SODIUM
     Indication: Pain
     Dosage: 4 TABLETS A DAY
     Route: 048
     Dates: start: 20230403, end: 20230405
  2. DUTASTERIDE [Concomitant]
     Active Substance: DUTASTERIDE

REACTIONS (1)
  - Product prescribing issue [Not Recovered/Not Resolved]

NARRATIVE: CASE EVENT DATE: 20230403
